FAERS Safety Report 9010483 (Version 1)
Quarter: 2013Q1

REPORT INFORMATION
  Report Type: Spontaneous
  Country: US (occurrence: US)
  Receive Date: 20130109
  Receipt Date: 20130109
  Transmission Date: 20140127
  Serious: Yes (Death)
  Sender: FDA-Public Use
  Company Number: US-ASTRAZENECA-2013SE01317

PATIENT
  Age: 63 Year
  Sex: Male

DRUGS (9)
  1. METOPROLOL [Suspect]
     Route: 048
  2. QUETIAPINE [Suspect]
     Route: 048
  3. ESCITALOPRAM [Suspect]
     Route: 048
  4. UNSPECIFIED INGREDIENT [Suspect]
     Route: 048
  5. ACETAMINOPHEN AND CODEINE [Suspect]
     Route: 048
  6. BENZODIAZEPINE [Suspect]
     Route: 048
  7. ESZOPICLONE [Suspect]
     Route: 048
  8. SIMVASTATIN [Suspect]
     Route: 048
  9. GABAPENTIN [Suspect]
     Route: 048

REACTIONS (2)
  - Completed suicide [Fatal]
  - Toxicity to various agents [Fatal]
